FAERS Safety Report 8051045-4 (Version None)
Quarter: 2012Q1

REPORT INFORMATION
  Report Type: 
  Country: None (occurrence: None)
  Receive Date: 20120117
  Receipt Date: 20120111
  Transmission Date: 20120608
  Serious: Yes (Other)
  Sender: FDA-Public Use
  Company Number: PHHY2012FR002691

PATIENT
  Age: 36 Year
  Sex: Female

DRUGS (3)
  1. CLOZAPINE [Suspect]
     Indication: MENTAL DISORDER
     Dosage: 50 MG, UNK
     Dates: start: 20040101, end: 20110601
  2. ATARAX [Concomitant]
  3. STRESAM [Concomitant]
     Indication: ANXIETY
     Dosage: 1 DF, TID

REACTIONS (3)
  - COLITIS [None]
  - NASOPHARYNGITIS [None]
  - URINARY TRACT INFECTION [None]
